FAERS Safety Report 7474242-5 (Version None)
Quarter: 2011Q2

REPORT INFORMATION
  Report Type: 
  Country: None (occurrence: None)
  Receive Date: 20110511
  Receipt Date: 20110429
  Transmission Date: 20111010
  Serious: Yes (Other)
  Sender: FDA-Public Use
  Company Number: CN-GILEAD-E2B_00001188

PATIENT
  Age: 46 Year
  Sex: Female

DRUGS (2)
  1. HEPSERA [Suspect]
     Indication: HEPATITIS B
     Dosage: 10MG PER DAY
     Route: 048
     Dates: start: 20080601, end: 20101201
  2. HEPTODIN [Suspect]
     Indication: HEPATITIS B
     Dosage: .1MG PER DAY
     Route: 048
     Dates: start: 20101201

REACTIONS (3)
  - PRODUCT QUALITY ISSUE [None]
  - DRUG RESISTANCE [None]
  - DRUG INEFFECTIVE [None]
